FAERS Safety Report 4938901-8 (Version None)
Quarter: 2006Q1

REPORT INFORMATION
  Report Type: 
  Country: None (occurrence: None)
  Receive Date: 20060309
  Receipt Date: 20051011
  Transmission Date: 20060701
  Serious: Yes (Hospitalization, Disabling, Other)
  Sender: FDA-Public Use
  Company Number: US-MERCK-0510USA06925

PATIENT
  Age: 60 Year
  Sex: Male
  Weight: 88 kg

DRUGS (6)
  1. VIOXX [Suspect]
     Indication: MONARTHRITIS
     Route: 048
     Dates: start: 19991230, end: 20040426
  2. IMDUR [Concomitant]
     Indication: CHEST PAIN
     Route: 065
  3. TOPROL-XL [Concomitant]
     Indication: BLOOD PRESSURE
     Route: 065
  4. TOPROL-XL [Concomitant]
     Indication: CARDIAC DISORDER
     Route: 065
  5. ACIPHEX [Concomitant]
     Indication: GASTROOESOPHAGEAL REFLUX DISEASE
     Route: 065
  6. NEXIUM [Concomitant]
     Indication: GASTROOESOPHAGEAL REFLUX DISEASE
     Route: 065

REACTIONS (10)
  - ARTERIOSCLEROSIS CORONARY ARTERY [None]
  - CHEST DISCOMFORT [None]
  - CHOLECYSTITIS [None]
  - CORONARY ARTERY DISEASE [None]
  - DIZZINESS [None]
  - DYSPNOEA [None]
  - HEADACHE [None]
  - HYPERLIPIDAEMIA [None]
  - MYOCARDIAL INFARCTION [None]
  - MYOCARDIAL ISCHAEMIA [None]
